FAERS Safety Report 14142350 (Version 2)
Quarter: 2017Q4

REPORT INFORMATION
  Report Type: Spontaneous
  Country: US (occurrence: US)
  Receive Date: 20171030
  Receipt Date: 20171102
  Transmission Date: 20180321
  Serious: Yes (Other)
  Sender: FDA-Public Use
  Company Number: US-PFIZER INC-2017463062

PATIENT
  Age: 60 Year
  Sex: Male
  Weight: 81.65 kg

DRUGS (4)
  1. PRISTIQ EXTENDED-RELEASE [Suspect]
     Active Substance: DESVENLAFAXINE SUCCINATE
     Dosage: 50 MG, DAILY
     Route: 048
     Dates: end: 201705
  2. KLONOPIN [Suspect]
     Active Substance: CLONAZEPAM
     Dosage: UNK
     Dates: end: 2017
  3. RESTORIL [Suspect]
     Active Substance: TEMAZEPAM
     Dosage: UNK
     Dates: end: 2017
  4. PRISTIQ EXTENDED-RELEASE [Suspect]
     Active Substance: DESVENLAFAXINE SUCCINATE
     Indication: DEPRESSION
     Dosage: 50MG TABLETS, 2 TABLETS A DAY
     Route: 048
     Dates: end: 201703

REACTIONS (13)
  - Paraesthesia [Recovered/Resolved]
  - Decreased appetite [Unknown]
  - Mental impairment [Unknown]
  - Malaise [Unknown]
  - Bone pain [Unknown]
  - Respiratory arrest [Unknown]
  - Feeling abnormal [Unknown]
  - Arthralgia [Unknown]
  - Withdrawal syndrome [Recovered/Resolved]
  - Cardiac disorder [Unknown]
  - Pain in extremity [Unknown]
  - Euphoric mood [Unknown]
  - Apparent death [Unknown]

NARRATIVE: CASE EVENT DATE: 2017
